FAERS Safety Report 21177239 (Version 2)
Quarter: 2022Q3

REPORT INFORMATION
  Report Type: Report from Study
  Country: US (occurrence: US)
  Receive Date: 20220805
  Receipt Date: 20220926
  Transmission Date: 20221026
  Serious: Yes (Disabling, Other)
  Sender: FDA-Public Use
  Company Number: US-SA-2022SA309066

PATIENT
  Age: 58 Year
  Sex: Female

DRUGS (11)
  1. AUBAGIO [Suspect]
     Active Substance: TERIFLUNOMIDE
     Indication: Multiple sclerosis
     Dosage: 14 MG, QD
     Route: 048
     Dates: start: 20181201
  2. AUBAGIO [Suspect]
     Active Substance: TERIFLUNOMIDE
     Dosage: 14 MG, QD
     Route: 048
     Dates: start: 20190925
  3. VITAMIN D NOS [Concomitant]
     Active Substance: VITAMIN D NOS
  4. FISH OIL [Concomitant]
     Active Substance: FISH OIL
  5. MELATONIN [Concomitant]
     Active Substance: MELATONIN
  6. BIOTIN [Concomitant]
     Active Substance: BIOTIN
  7. ALEVE [Concomitant]
     Active Substance: NAPROXEN SODIUM
  8. FIBER [Concomitant]
     Active Substance: PSYLLIUM HUSK
  9. CARVEDILOL [Concomitant]
     Active Substance: CARVEDILOL
  10. CYANOCOBALAMIN [Concomitant]
     Active Substance: CYANOCOBALAMIN
  11. L CARNITINE [LEVOCARNITINE FUMARATE] [Concomitant]

REACTIONS (4)
  - Gait inability [Recovering/Resolving]
  - Multiple sclerosis relapse [Unknown]
  - Balance disorder [Unknown]
  - Stress [Unknown]

NARRATIVE: CASE EVENT DATE: 20220511
